FAERS Safety Report 6046211-3 (Version None)
Quarter: 2009Q1

REPORT INFORMATION
  Report Type: 
  Country: None (occurrence: None)
  Receive Date: 20090121
  Receipt Date: 20090121
  Transmission Date: 20090719
  Serious: No
  Sender: FDA-Public Use
  Company Number: None

PATIENT
  Sex: Female
  Weight: 96.36 kg

DRUGS (16)
  1. DETROL LA [Suspect]
     Dosage: 4 MG QD
     Route: 048
     Dates: start: 20080415, end: 20090120
  2. ALENDRONATE SODIUM [Concomitant]
  3. AMITRIPTYLINE HCL [Concomitant]
  4. ASPIRIN [Concomitant]
  5. CALCIUM + VITAMIN D [Concomitant]
  6. COZAAR [Concomitant]
  7. IMDUR ER (ISOSORBIDE MONONITRATE (SR)) [Concomitant]
  8. LANTUS SOLOSTAR INSULIN PENS [Concomitant]
  9. NEURONTIN [Concomitant]
  10. NULYTELY [Concomitant]
  11. OMEPRAZOLE [Concomitant]
  12. PLAQUENIL [Concomitant]
  13. PLAVIX [Concomitant]
  14. TOPROL-XL [Concomitant]
  15. VESICARE [Concomitant]
  16. ZETIA [Concomitant]

REACTIONS (1)
  - URINARY RETENTION [None]
